FAERS Safety Report 5450374-8 (Version None)
Quarter: 2007Q3

REPORT INFORMATION
  Report Type: 
  Country: None (occurrence: None)
  Receive Date: 20070912
  Receipt Date: 20070830
  Transmission Date: 20080115
  Serious: Yes (Other)
  Sender: FDA-Public Use
  Company Number: BR-SHR-BR-2007-033145

PATIENT
  Age: 20 Year
  Sex: Female

DRUGS (4)
  1. BETAFERON [Suspect]
     Dosage: 8 MIU, EVERY 2D
     Route: 058
     Dates: start: 20060101
  2. DEXA-CITONEURIN [Concomitant]
     Dosage: UNK, 2X/DAY
     Route: 048
  3. METICORTEN [Concomitant]
     Dosage: UNK, 1X/DAY
  4. BEMINAL [Concomitant]
     Dosage: UNK, 2X/DAY

REACTIONS (1)
  - FACIAL PALSY [None]
